FAERS Safety Report 15737483 (Version 2)
Quarter: 2019Q1

REPORT INFORMATION
  Report Type: Spontaneous
  Country: US (occurrence: US)
  Receive Date: 20181218
  Receipt Date: 20190102
  Transmission Date: 20190417
  Serious: No
  Sender: FDA-Public Use
  Company Number: US-ELI_LILLY_AND_COMPANY-US201812006002

PATIENT
  Sex: Male

DRUGS (1)
  1. SOMATROPIN 12MG [Suspect]
     Active Substance: SOMATROPIN
     Indication: HYPOPITUITARISM
     Dosage: 1.4 MG, OTHER (6 TIMES/WEEK)
     Route: 058
     Dates: start: 20180828

REACTIONS (1)
  - Fear of injection [Unknown]
